FAERS Safety Report 6962676-4 (Version None)
Quarter: 2010Q3

REPORT INFORMATION
  Report Type: 
  Country: None (occurrence: None)
  Receive Date: 20100902
  Receipt Date: 20100824
  Transmission Date: 20110219
  Serious: Yes (Other)
  Sender: FDA-Public Use
  Company Number: US-ASTRAZENECA-2010SE39879

PATIENT
  Age: 43 Year
  Sex: Female
  Weight: 124.3 kg

DRUGS (27)
  1. LISINOPRIL [Suspect]
     Indication: BLOOD PRESSURE INCREASED
     Route: 048
  2. OMEPRAZOLE [Suspect]
     Indication: GASTROOESOPHAGEAL REFLUX DISEASE
     Route: 048
  3. PROPRANOLOL [Suspect]
     Indication: BLOOD PRESSURE INCREASED
     Route: 048
  4. LIDODERM [Suspect]
     Indication: MYALGIA
     Dosage: 3 PATCHES, 12 HOURS ON IT AND 12 HOURS OFF IT
     Route: 062
  5. LYRICA [Suspect]
     Indication: FIBROMYALGIA
     Route: 048
  6. LYRICA [Suspect]
     Route: 048
  7. FLUTICASONE PROPIONATE [Suspect]
     Indication: NASAL SEPTUM DEVIATION
     Route: 045
     Dates: start: 20100101
  8. SIMVASTATIN [Suspect]
     Indication: HYPERCHOLESTEROLAEMIA
     Route: 048
  9. MELOXICAM [Suspect]
     Indication: PAIN
     Route: 048
  10. CETRIZINE [Suspect]
     Indication: HYPERSENSITIVITY
     Route: 048
  11. ACETYLESALICYLIC ACID [Suspect]
     Indication: CARDIAC DISORDER
     Route: 048
  12. LEVOTHYROXINE SODIUM [Suspect]
     Indication: THYROID DISORDER
     Route: 048
  13. TEGRETOL [Suspect]
     Indication: PERSONALITY DISORDER
  14. TEGRETOL [Suspect]
     Indication: MOOD SWINGS
  15. TEGRETOL [Suspect]
  16. TEGRETOL [Suspect]
  17. PROVIGIL [Suspect]
     Indication: SLEEP APNOEA SYNDROME
     Route: 048
  18. PROVIGIL [Suspect]
     Dosage: ONE AND HALF TABLETS DAILY
     Route: 048
  19. METHOCARBAMOL [Suspect]
     Indication: PAIN
     Route: 048
  20. BACLOFEN [Suspect]
     Indication: RESTLESS LEGS SYNDROME
     Route: 048
  21. METHADOSE [Suspect]
     Indication: PAIN
     Route: 048
  22. CYMBALTA [Suspect]
     Indication: DEPRESSION
     Route: 048
  23. INSULIN DETEMIR [Suspect]
     Indication: DIABETES MELLITUS
     Route: 058
  24. INSULIN DETEMIR [Suspect]
     Route: 058
  25. MIRALAX [Suspect]
     Indication: CONSTIPATION
     Route: 048
  26. FISH OIL [Suspect]
  27. VITAMIN E [Suspect]

REACTIONS (2)
  - CONVULSION [None]
  - FIBROMYALGIA [None]
